FAERS Safety Report 8250607-9 (Version None)
Quarter: 2012Q2

REPORT INFORMATION
  Report Type: 
  Country: None (occurrence: None)
  Receive Date: 20120402
  Receipt Date: 20120328
  Transmission Date: 20120825
  Serious: Yes (Death, Life-Threatening)
  Sender: FDA-Public Use
  Company Number: ES-ROCHE-1005432

PATIENT
  Age: 77 Year
  Sex: Female
  Weight: 56.5 kg

DRUGS (13)
  1. PLACEBO [Suspect]
     Indication: RHEUMATOID ARTHRITIS
     Dosage: LAST DOSE PRIOR TO SAE: 14 SEP 2011.
     Route: 042
     Dates: start: 20110426
  2. CALCIFEROL [Concomitant]
     Indication: OSTEOPOROSIS
     Route: 048
     Dates: start: 20080630
  3. PREDNISONE TAB [Concomitant]
     Indication: RHEUMATOID ARTHRITIS
     Route: 048
     Dates: start: 20080630
  4. LEDERFOLIN [Concomitant]
     Indication: RHEUMATOID ARTHRITIS
     Route: 048
     Dates: start: 20090223
  5. CALCIUM NOS/CHOLECALCIFEROL [Concomitant]
     Indication: CALCIUM DEFICIENCY
     Route: 048
     Dates: start: 20090914
  6. ACTEMRA [Suspect]
     Indication: RHEUMATOID ARTHRITIS
     Dosage: LAST DOSE PRIOR TO SAE-05-OCT-2011
     Route: 058
     Dates: start: 20110426
  7. CELECOXIB [Concomitant]
     Indication: RHEUMATOID ARTHRITIS
     Route: 048
     Dates: start: 20100304
  8. IBANDRONATE SODIUM [Concomitant]
     Indication: OSTEOPOROSIS
     Route: 048
     Dates: start: 20080630
  9. ACETAMINOPHEN [Concomitant]
     Indication: PAIN
     Route: 048
     Dates: start: 20090914
  10. METHOTREXATE [Concomitant]
     Indication: RHEUMATOID ARTHRITIS
     Route: 048
     Dates: start: 20090223
  11. METAMIZOL [Concomitant]
     Indication: PAIN
     Dates: start: 20090914
  12. DOXAZOSINA [Concomitant]
     Indication: HYPERTENSION
     Route: 048
     Dates: start: 20100118
  13. CANDESARTAN CILEXETIL [Concomitant]
     Indication: HYPERTENSION
     Route: 048
     Dates: start: 20090914

REACTIONS (2)
  - SHOCK [None]
  - PELVIC PAIN [None]
